FAERS Safety Report 4625036-7 (Version None)
Quarter: 2005Q1

REPORT INFORMATION
  Report Type: 
  Country: None (occurrence: None)
  Receive Date: 20050325
  Receipt Date: 20050126
  Transmission Date: 20050727
  Serious: No
  Sender: FDA-Public Use
  Company Number: US_0502112570

PATIENT
  Age: 79 Year
  Sex: Female
  Weight: 49 kg

DRUGS (1)
  1. FORTEO [Suspect]
     Indication: OSTEOPOROSIS
     Dosage: 20 UG
     Dates: start: 20050101

REACTIONS (5)
  - ARTHRALGIA [None]
  - DIZZINESS [None]
  - MUSCLE TWITCHING [None]
  - NAUSEA [None]
  - PAIN IN EXTREMITY [None]
